FAERS Safety Report 6004019-9 (Version None)
Quarter: 2008Q4

REPORT INFORMATION
  Report Type: 
  Country: None (occurrence: None)
  Receive Date: 20081216
  Receipt Date: 20081205
  Transmission Date: 20090506
  Serious: Yes (Other)
  Sender: FDA-Public Use
  Company Number: A0725154A

PATIENT
  Age: 65 Year
  Sex: Male
  Weight: 117.7 kg

DRUGS (3)
  1. AVANDIA [Suspect]
     Indication: TYPE 2 DIABETES MELLITUS
     Dosage: 8MG PER DAY
     Route: 065
     Dates: start: 20040801, end: 20070901
  2. HUMALOG [Concomitant]
     Dates: start: 19860301
  3. GLUCOTROL [Concomitant]
     Dates: start: 20040101

REACTIONS (2)
  - CARDIAC FAILURE CONGESTIVE [None]
  - HEART INJURY [None]
